FAERS Safety Report 4553705-6 (Version None)
Quarter: 2005Q1

REPORT INFORMATION
  Report Type: 
  Country: None (occurrence: None)
  Receive Date: 20050114
  Receipt Date: 20050114
  Transmission Date: 20050727
  Serious: Yes (Hospitalization)
  Sender: FDA-Public Use
  Company Number: None

PATIENT
  Age: 53 Year
  Sex: Female

DRUGS (10)
  1. RANITIDINE [Suspect]
     Indication: PROPHYLAXIS
     Dosage: 50 MG   IV Q6H
     Route: 042
     Dates: start: 20041031, end: 20041108
  2. RANITIDINE [Suspect]
     Indication: STRESS ULCER
     Dosage: 50 MG   IV Q6H
     Route: 042
     Dates: start: 20041031, end: 20041108
  3. ACETAMINOPHEN TAB [Concomitant]
  4. FOSPHENYTOIN INJ [Concomitant]
  5. FOSPHENYTOIN NA INJ [Concomitant]
  6. SODIUM CHLORIDE INJ [Concomitant]
  7. HYDROCORTISONE SODIUM SUCCINATE INJ, SOLN [Concomitant]
  8. LEVOTHYROXINE SODIUM TAB [Concomitant]
  9. MAGNESIUM HYDROXIDE SUSP [Concomitant]
  10. OMEPRAZOLE [Concomitant]

REACTIONS (1)
  - PLATELET COUNT DECREASED [None]
